FAERS Safety Report 23355029 (Version 10)
Quarter: 2024Q2

REPORT INFORMATION
  Report Type: Other
  Country: US (occurrence: None)
  Receive Date: 20240101
  Receipt Date: 20240515
  Transmission Date: 20240716
  Serious: Yes (Hospitalization)
  Sender: FDA-Public Use
  Company Number: US-ROCHE-3481465

PATIENT
  Age: 66 Year
  Sex: Female

DRUGS (11)
  1. OCRELIZUMAB [Suspect]
     Active Substance: OCRELIZUMAB
     Indication: Secondary progressive multiple sclerosis
     Dosage: EVERY 14 DAYS FOR 2 WEEKS?DATE OF SECOND ADMINISTRATION 15-OCT-2020
     Route: 042
     Dates: start: 20201002, end: 20201015
  2. OCRELIZUMAB [Suspect]
     Active Substance: OCRELIZUMAB
     Dosage: DATE OF MOST RECENT DOSE PRIOR TO ADVERSE EVENT: 21/JUN/2023
     Route: 042
     Dates: start: 20210608, end: 20231221
  3. BACLOFEN [Concomitant]
     Active Substance: BACLOFEN
     Dates: start: 2002
  4. NORTRIPTYLINE [Concomitant]
     Active Substance: NORTRIPTYLINE
     Dates: start: 2002
  5. PROVIGIL [Concomitant]
     Active Substance: MODAFINIL
     Dates: start: 2002
  6. ZOMIG [Concomitant]
     Active Substance: ZOLMITRIPTAN
     Dates: start: 2004
  7. AMPYRA [Concomitant]
     Active Substance: DALFAMPRIDINE
     Dates: start: 2010
  8. TIZANIDINE [Concomitant]
     Active Substance: TIZANIDINE
     Dates: start: 201410
  9. NUVIGIL [Concomitant]
     Active Substance: ARMODAFINIL
     Dates: start: 201908, end: 2019
  10. LEVOTHYROXINE [Concomitant]
     Active Substance: LEVOTHYROXINE\LEVOTHYROXINE SODIUM
     Dates: start: 2021
  11. ERGOCALCIFEROL [Concomitant]
     Active Substance: ERGOCALCIFEROL
     Dates: start: 201508

REACTIONS (1)
  - Urinary tract infection [Recovered/Resolved]

NARRATIVE: CASE EVENT DATE: 20231029
